FAERS Safety Report 21062175 (Version 2)
Quarter: 2022Q3

REPORT INFORMATION
  Report Type: Spontaneous
  Country: RU (occurrence: RU)
  Receive Date: 20220711
  Receipt Date: 20220722
  Transmission Date: 20221027
  Serious: Yes (Death, Life-Threatening, Hospitalization, Other)
  Sender: FDA-Public Use
  Company Number: RU-CELGENE-RUS-20211004290

PATIENT
  Age: 67 Year
  Sex: Female
  Weight: 73.3 kg

DRUGS (40)
  1. AZACITIDINE [Suspect]
     Active Substance: AZACITIDINE
     Indication: Myelodysplastic syndrome
     Dosage: FREQUENCY TEXT: DAYS 1-7 OF EACH 28-DAY CYCLE
     Route: 042
     Dates: start: 20210817, end: 20210823
  2. AZACITIDINE [Suspect]
     Active Substance: AZACITIDINE
     Dosage: FREQUENCY TEXT: DAYS 1-7 OF EACH 28-DAY CYCLE
     Route: 042
     Dates: start: 20210923, end: 20210929
  3. VENETOCLAX [Suspect]
     Active Substance: VENETOCLAX
     Indication: Myelodysplastic syndrome
     Dosage: FREQUENCY TEXT: NOT PROVIDED
     Route: 048
  4. MEROPENEM [Concomitant]
     Active Substance: MEROPENEM
     Indication: Hyperthermia
     Dosage: 3 MILLIGRAM
     Route: 042
     Dates: start: 20210810, end: 20210927
  5. MEROPENEM [Concomitant]
     Active Substance: MEROPENEM
     Indication: Infection prophylaxis
     Dosage: 3 MILLIGRAM
     Route: 042
     Dates: start: 20210928
  6. MEROPENEM [Concomitant]
     Active Substance: MEROPENEM
     Dosage: 3 IN 1 D
     Route: 042
     Dates: start: 20210914, end: 20210914
  7. MEROPENEM [Concomitant]
     Active Substance: MEROPENEM
     Dosage: 3 IN 1 D
     Route: 042
     Dates: start: 20210915, end: 20210921
  8. MEROPENEM [Concomitant]
     Active Substance: MEROPENEM
     Dosage: 3 IN 1 D
     Route: 042
     Dates: start: 20210924, end: 20210927
  9. DICLOFENAC [Concomitant]
     Active Substance: DICLOFENAC
     Indication: Spinal osteoarthritis
     Dosage: 75 MILLIGRAM
     Route: 030
     Dates: start: 20211001
  10. MAGNESIUM SULFATE [Concomitant]
     Active Substance: MAGNESIUM SULFATE
     Indication: Osteochondrosis
     Dosage: 200 MILLIGRAM
     Route: 042
     Dates: start: 20211005
  11. MAGNESIUM SULFATE [Concomitant]
     Active Substance: MAGNESIUM SULFATE
     Indication: Product used for unknown indication
  12. VORICONAZOLE [Concomitant]
     Active Substance: VORICONAZOLE
     Indication: Hyperthermia
     Dosage: 2 IN 1 D
     Route: 042
     Dates: start: 20210915, end: 20210921
  13. VORICONAZOLE [Concomitant]
     Active Substance: VORICONAZOLE
     Indication: Fungal infection
     Dosage: 2 IN 1 D
     Route: 042
     Dates: start: 20210924, end: 20210927
  14. VORICONAZOLE [Concomitant]
     Active Substance: VORICONAZOLE
     Indication: Neutropenia
     Dosage: 2 IN 1 D
     Route: 042
     Dates: start: 20210928
  15. SODIUM CHLORIDE [Concomitant]
     Active Substance: SODIUM CHLORIDE
     Indication: Prophylaxis
     Dosage: 1) ( 7.5 MILLIGRAM(S) )
     Route: 042
     Dates: start: 20210817, end: 20210824
  16. SODIUM CHLORIDE [Concomitant]
     Active Substance: SODIUM CHLORIDE
     Route: 042
     Dates: start: 20210923, end: 20210929
  17. EMPEGFILGRASTIM [Concomitant]
     Indication: Prophylaxis
     Dosage: FREQUENCY TEXT: 1 IN 1 ONCE
     Route: 058
     Dates: start: 20210820, end: 20210820
  18. OMEPRAZOLE [Concomitant]
     Active Substance: OMEPRAZOLE
     Indication: Prophylaxis against gastrointestinal ulcer
     Dosage: 1) 2 MILLIGRAM(S) ( 1 MILLIGRAM(S) ),2 IN 1DAY ROUTE OF ADMIN : 1) ORAL
     Route: 048
     Dates: start: 20210727, end: 20211008
  19. METFORMIN [Concomitant]
     Active Substance: METFORMIN HYDROCHLORIDE
     Indication: Diabetes mellitus
     Route: 048
     Dates: start: 20010101, end: 20211012
  20. INSULIN FIASP [Concomitant]
     Indication: Diabetes mellitus
     Dosage: 1) ,3 IN 1DAY
     Route: 058
     Dates: start: 20190101, end: 20211013
  21. INSULIN TUJEO SOLOSTAR [Concomitant]
     Indication: Diabetes mellitus
     Dosage: 1 IN 1DAY
     Route: 058
     Dates: start: 20190101
  22. VANCOMYCIN [Concomitant]
     Active Substance: VANCOMYCIN
     Indication: Hyperthermia
     Dosage: 1 MILLIGRAM
     Route: 058
     Dates: start: 20210830, end: 20211004
  23. LEVOFLOXACIN [Concomitant]
     Active Substance: LEVOFLOXACIN
     Indication: Infection prophylaxis
     Dosage: 500 MILLIGRAM
     Route: 048
     Dates: start: 20210906, end: 20210915
  24. POSACONAZOLE [Concomitant]
     Active Substance: POSACONAZOLE
     Indication: Antifungal prophylaxis
     Dosage: 200 MILLIGRAM
     Route: 048
     Dates: start: 20210907, end: 20210915
  25. AMIKACIN [Concomitant]
     Active Substance: AMIKACIN
     Indication: Hyperthermia
     Dosage: 1000 MILLIGRAM
     Route: 048
     Dates: start: 20210914, end: 20210921
  26. CIPROFLOXACIN [Concomitant]
     Active Substance: CIPROFLOXACIN
     Indication: Infection prophylaxis
     Route: 048
     Dates: start: 20210922, end: 20210929
  27. ONDANSETRON [Concomitant]
     Active Substance: ONDANSETRON
     Indication: Prophylaxis of nausea and vomiting
     Dosage: 8 MILLIGRAM
     Route: 042
     Dates: start: 20210923, end: 20210929
  28. ALLOPURINOL [Concomitant]
     Active Substance: ALLOPURINOL
     Indication: Prophylaxis
     Dosage: FREQUENCY TEXT: NOT PROVIDED
     Route: 048
     Dates: start: 20210817, end: 20210824
  29. ALLOPURINOL [Concomitant]
     Active Substance: ALLOPURINOL
     Indication: Hyperuricaemia
     Dosage: FREQUENCY TEXT: NOT PROVIDED
     Route: 048
     Dates: start: 20210923, end: 20210929
  30. FILGRASTIM [Concomitant]
     Active Substance: FILGRASTIM
     Indication: Neutropenia
     Dosage: 1 IN 1 D
     Route: 058
     Dates: start: 20210827, end: 20210923
  31. TRANEXAMIC ACID [Concomitant]
     Active Substance: TRANEXAMIC ACID
     Indication: Haemorrhage prophylaxis
     Dosage: 500 MILLIGRAM
     Route: 042
     Dates: start: 20210810, end: 20210915
  32. TRANEXAMIC ACID [Concomitant]
     Active Substance: TRANEXAMIC ACID
     Indication: Prophylaxis
     Dosage: 500 MILLIGRAM
     Route: 042
     Dates: start: 20210922
  33. TRANEXAMIC ACID [Concomitant]
     Active Substance: TRANEXAMIC ACID
     Dosage: 1 IN 1 D
     Route: 042
     Dates: start: 20210728, end: 20210730
  34. TRANEXAMIC ACID [Concomitant]
     Active Substance: TRANEXAMIC ACID
     Dosage: 1 IN 1 D
     Route: 042
     Dates: start: 20210906, end: 20210915
  35. TRAMADOL [Concomitant]
     Active Substance: TRAMADOL
     Indication: Spinal osteoarthritis
     Dosage: 200 MILLIGRAM
     Route: 042
     Dates: start: 20210928, end: 20211004
  36. KETOPROFEN [Concomitant]
     Active Substance: KETOPROFEN
     Indication: Spinal osteoarthritis
     Dosage: 200 MILLIGRAM
     Route: 042
     Dates: start: 20210928, end: 20211004
  37. URSODIOL [Concomitant]
     Active Substance: URSODIOL
     Indication: Liver disorder
     Dosage: 2 IN 1 D
     Route: 048
     Dates: start: 20210927
  38. URSODIOL [Concomitant]
     Active Substance: URSODIOL
     Indication: Antiviral prophylaxis
     Dosage: 1000 MILLIGRAM
     Route: 048
     Dates: start: 20210922
  39. FENTANYL TRANSDERMAL SYSTEM [Concomitant]
     Active Substance: FENTANYL
     Indication: Spinal osteoarthritis
     Dosage: 50 MICROGRAMS PER HOUR
     Route: 062
     Dates: start: 20211003, end: 20211005
  40. TOLPERIZON [Concomitant]
     Indication: Arthralgia
     Dosage: 100 MILLIGRAM
     Route: 048
     Dates: start: 20211007

REACTIONS (3)
  - Multiple organ dysfunction syndrome [Fatal]
  - Respiratory failure [Unknown]
  - Neutropenia [Unknown]

NARRATIVE: CASE EVENT DATE: 20210923
